FAERS Safety Report 4935899-3 (Version None)
Quarter: 2006Q1

REPORT INFORMATION
  Report Type: 
  Country: None (occurrence: None)
  Receive Date: 20060302
  Receipt Date: 20060208
  Transmission Date: 20060701
  Serious: Yes (Hospitalization)
  Sender: FDA-Public Use
  Company Number: US200602001934

PATIENT
  Age: 64 Year
  Sex: Female

DRUGS (4)
  1. FORTEO [Suspect]
     Indication: OSTEOPOROSIS
     Dates: start: 20050201
  2. FORTEO PEN (FORTEO PEN) [Concomitant]
  3. LASIX (FUROSEMIDE, FUROSEMIDE SODIUM) [Concomitant]
  4. MORPHINE SULFATE [Concomitant]

REACTIONS (7)
  - AMNESIA [None]
  - BLOOD CALCIUM INCREASED [None]
  - DIARRHOEA [None]
  - FALL [None]
  - PHARMACEUTICAL PRODUCT COMPLAINT [None]
  - RENAL DISORDER [None]
  - SOMNOLENCE [None]
